FAERS Safety Report 8890621 (Version 3)
Quarter: 2012Q4

REPORT INFORMATION
  Report Type: 
  Country: US (occurrence: US)
  Receive Date: 20121107
  Receipt Date: 20121220
  Transmission Date: 20130627
  Serious: Yes (Hospitalization)
  Sender: FDA-Public Use
  Company Number: US-BAYER-2012-100905

PATIENT
  Age: 70 Year
  Sex: Male

DRUGS (14)
  1. NEXAVAR [Suspect]
     Indication: LIVER, CANCER OF
     Dosage: UNK
     Dates: start: 20120917, end: 20120917
  2. NEXAVAR [Suspect]
     Indication: LIVER, CANCER OF
     Dosage: 200 mg, BID
     Dates: start: 20120924
  3. NEXAVAR [Suspect]
     Indication: LIVER, CANCER OF
     Dosage: 400 mg, BID
     Route: 048
     Dates: start: 20120917
  4. NEXAVAR [Suspect]
     Indication: LIVER, CANCER OF
     Dosage: 200 mg am 400 mg pm
     Route: 048
     Dates: start: 201210, end: 201210
  5. NEXAVAR [Suspect]
     Indication: LIVER, CANCER OF
     Dosage: 400 mg, BID
     Route: 048
     Dates: start: 201210
  6. NEXAVAR [Suspect]
     Indication: LIVER, CANCER OF
     Dosage: 2-3 pills a day
  7. NEXAVAR [Suspect]
     Indication: LIVER, CANCER OF
     Dosage: 2 am and 1 pm daily
     Route: 048
     Dates: start: 20120914
  8. ANTIHYPERTENSIVES [Concomitant]
  9. FUROSEMIDE [Concomitant]
  10. AMLODIPINE [Concomitant]
  11. BACLOFEN [Concomitant]
  12. PRILOSEC [Concomitant]
  13. TRAMADOL [Concomitant]
  14. OXYCODONE [Concomitant]

REACTIONS (8)
  - Diarrhoea [Not Recovered/Not Resolved]
  - Constipation [Recovering/Resolving]
  - Haematochezia [Not Recovered/Not Resolved]
  - Sensation of heaviness [Recovering/Resolving]
  - Blood pressure increased [Recovering/Resolving]
  - Groin pain [Not Recovered/Not Resolved]
  - Pyrexia [None]
  - Chills [None]
